FAERS Safety Report 22019634 (Version 1)
Quarter: 2023Q1

REPORT INFORMATION
  Report Type: Spontaneous
  Country: JP (occurrence: JP)
  Receive Date: 20230222
  Receipt Date: 20230222
  Transmission Date: 20230418
  Serious: Yes (Other)
  Sender: FDA-Public Use
  Company Number: JP-AMGEN-JPNSP2023028555

PATIENT
  Age: 18 Year
  Sex: Male

DRUGS (2)
  1. ADALIMUMAB [Suspect]
     Active Substance: ADALIMUMAB
     Indication: Crohn^s disease
     Route: 065
  2. MESALAMINE [Concomitant]
     Active Substance: MESALAMINE
     Indication: Crohn^s disease
     Dosage: UNK
     Route: 065

REACTIONS (5)
  - Takayasu^s arteritis [Unknown]
  - Renovascular hypertension [Recovering/Resolving]
  - Renal impairment [Unknown]
  - Renin increased [Unknown]
  - Blood aldosterone increased [Unknown]
